FAERS Safety Report 25734496 (Version 1)
Quarter: 2025Q3

REPORT INFORMATION
  Report Type: Spontaneous
  Country: RU (occurrence: RU)
  Receive Date: 20250828
  Receipt Date: 20250828
  Transmission Date: 20251021
  Serious: Yes (Hospitalization, Other)
  Sender: RANBAXY
  Company Number: RU-SUN PHARMACEUTICAL INDUSTRIES LTD-2025R1-524194

PATIENT
  Age: 33 Year
  Sex: Male

DRUGS (5)
  1. CEFTRIAXONE [Suspect]
     Active Substance: CEFTRIAXONE
     Indication: Antibiotic therapy
     Route: 065
  2. CIPROFLOXACIN [Suspect]
     Active Substance: CIPROFLOXACIN
     Indication: Antibiotic therapy
     Route: 065
  3. ETHAMSYLATE [Suspect]
     Active Substance: ETHAMSYLATE
     Indication: Haemorrhage
     Route: 065
  4. TRANEXAMIC ACID [Suspect]
     Active Substance: TRANEXAMIC ACID
     Indication: Haemorrhage
     Route: 065
  5. metragyl [Concomitant]
     Indication: Antibiotic therapy
     Route: 065

REACTIONS (2)
  - Treatment failure [Unknown]
  - Disease recurrence [Unknown]

NARRATIVE: CASE EVENT DATE: 20201217
